FAERS Safety Report 25878102 (Version 1)
Quarter: 2025Q4

REPORT INFORMATION
  Report Type: Spontaneous
  Country: CN (occurrence: CN)
  Receive Date: 20251003
  Receipt Date: 20251003
  Transmission Date: 20260117
  Serious: Yes (Other)
  Sender: DAIICHI
  Company Number: CN-DSJP-DS-2025-166946-CN

PATIENT
  Age: 58 Year
  Sex: Female
  Weight: 35 kg

DRUGS (2)
  1. TRASTUZUMAB DERUXTECAN [Suspect]
     Active Substance: TRASTUZUMAB DERUXTECAN
     Indication: Symptomatic treatment
     Dosage: 200 MG, QD
     Route: 041
     Dates: start: 20250820, end: 20250820
  2. SINTILIMAB [Suspect]
     Active Substance: SINTILIMAB
     Indication: Symptomatic treatment
     Dosage: 0.1 G, QD
     Route: 041
     Dates: start: 20250820, end: 20250820

REACTIONS (1)
  - Myelosuppression [Not Recovered/Not Resolved]

NARRATIVE: CASE EVENT DATE: 20250923
